FAERS Safety Report 5126785-7 (Version None)
Quarter: 2006Q4

REPORT INFORMATION
  Report Type: 
  Country: None (occurrence: None)
  Receive Date: 20061011
  Receipt Date: 20061011
  Transmission Date: 20070319
  Serious: Yes (Other)
  Sender: FDA-Public Use
  Company Number: None

PATIENT
  Age: 64 Year
  Sex: Male
  Weight: 75.7507 kg

DRUGS (1)
  1. TADALAFIL   20MG [Suspect]
     Indication: ERECTILE DYSFUNCTION
     Dosage: 1 PILL    EACH FRIDAY   PO
     Route: 048
     Dates: start: 20060208, end: 20061008

REACTIONS (3)
  - DIARRHOEA [None]
  - FLATULENCE [None]
  - GASTROINTESTINAL DISORDER [None]
